FAERS Safety Report 5255259-8 (Version None)
Quarter: 2007Q1

REPORT INFORMATION
  Report Type: 
  Country: None (occurrence: None)
  Receive Date: 20070305
  Receipt Date: 20070226
  Transmission Date: 20070707
  Serious: Yes (Hospitalization, Other)
  Sender: FDA-Public Use
  Company Number: US-JNJFOC-20070101949

PATIENT
  Sex: Female
  Weight: 72.58 kg

DRUGS (16)
  1. REMICADE [Suspect]
     Indication: CROHN'S DISEASE
     Route: 042
  2. METFORMIN HCL [Concomitant]
     Route: 048
  3. CLOMIPRAMINE HCL [Concomitant]
     Route: 048
  4. FLUVOXAMINE MALEATE [Concomitant]
     Route: 048
  5. GEODON [Concomitant]
     Route: 048
  6. 6-MP [Concomitant]
     Route: 048
  7. PENTACARD [Concomitant]
  8. PENTASA [Concomitant]
     Route: 048
  9. PROPRANOLOL [Concomitant]
     Route: 048
  10. IRON SULFATETHIAMIN COMPOUND TAB [Concomitant]
     Route: 048
  11. PROTONIX [Concomitant]
     Route: 048
  12. DULC [Concomitant]
  13. OXYCODONE HCL [Concomitant]
  14. ZOFRAN [Concomitant]
  15. DILAUDID [Concomitant]
     Indication: PAIN
     Dosage: 2 MG Q4H PRN ORAL, TOTAL 15 TABS GIVEN WITH NO REFILL
     Route: 048
  16. ENTOCORT [Concomitant]
     Route: 048

REACTIONS (3)
  - CROHN'S DISEASE [None]
  - GRAND MAL CONVULSION [None]
  - MENTAL STATUS CHANGES [None]
